FAERS Safety Report 9720664 (Version 2)
Quarter: 2013Q4

REPORT INFORMATION
  Report Type: Spontaneous
  Country: PT (occurrence: PT)
  Receive Date: 20131129
  Receipt Date: 20131209
  Transmission Date: 20140711
  Serious: Yes (Hospitalization)
  Sender: FDA-Public Use
  Company Number: PHHY2013PT135822

PATIENT
  Age: 55 Year
  Sex: Male

DRUGS (1)
  1. GLIVEC [Suspect]
     Dosage: 400 MG
     Dates: end: 2010

REACTIONS (4)
  - Shock [Recovered/Resolved]
  - Hypoxia [Recovered/Resolved]
  - Interstitial lung disease [Recovered/Resolved]
  - Rash [Recovered/Resolved]
